FAERS Safety Report 24628503 (Version 5)
Quarter: 2025Q3

REPORT INFORMATION
  Report Type: Report from Study
  Country: JP (occurrence: JP)
  Receive Date: 20241117
  Receipt Date: 20250917
  Transmission Date: 20251021
  Serious: Yes (Death, Life-Threatening, Hospitalization, Other)
  Sender: TAKEDA
  Company Number: JP-TAKEDA-2024TJP016070

PATIENT
  Age: 69 Year
  Sex: Male
  Weight: 55 kg

DRUGS (31)
  1. MARIBAVIR [Suspect]
     Active Substance: MARIBAVIR
     Indication: Cytomegalovirus infection
     Dosage: 400 MILLIGRAM, BID
     Dates: start: 20241025, end: 20241203
  2. TACROLIMUS [Concomitant]
     Active Substance: TACROLIMUS
  3. TACROLIMUS [Concomitant]
     Active Substance: TACROLIMUS
  4. MYCOPHENOLATE MOFETIL [Concomitant]
     Active Substance: MYCOPHENOLATE MOFETIL
  5. LINAGLIPTIN [Concomitant]
     Active Substance: LINAGLIPTIN
  6. LEVOTHYROXINE [Concomitant]
     Active Substance: LEVOTHYROXINE
  7. AMIODARONE HYDROCHLORIDE [Concomitant]
     Active Substance: AMIODARONE HYDROCHLORIDE
  8. BISOPROLOL FUMARATE [Concomitant]
     Active Substance: BISOPROLOL FUMARATE
  9. RAMELTEON [Concomitant]
     Active Substance: RAMELTEON
  10. ATORVASTATIN [Concomitant]
     Active Substance: ATORVASTATIN
  11. SODIUM FERROUS CITRATE [Concomitant]
     Active Substance: SODIUM FERROUS CITRATE
  12. AMOXICILLIN TRIHYDRATE [Concomitant]
     Active Substance: AMOXICILLIN
  13. DAPRODUSTAT [Concomitant]
     Active Substance: DAPRODUSTAT
  14. SARPOGRELATE HYDROCHLORIDE [Concomitant]
     Active Substance: SARPOGRELATE HYDROCHLORIDE
  15. LIMAPROST [Concomitant]
     Active Substance: LIMAPROST
  16. SULFAMETHOXAZOLE\TRIMETHOPRIM [Concomitant]
     Active Substance: SULFAMETHOXAZOLE\TRIMETHOPRIM
  17. INSULIN NOS [Concomitant]
     Active Substance: INSULIN NOS
  18. FUROSEMIDE [Concomitant]
     Active Substance: FUROSEMIDE
  19. LENOGRASTIM [Concomitant]
     Active Substance: LENOGRASTIM
  20. FEBUXOSTAT [Concomitant]
     Active Substance: FEBUXOSTAT
  21. RABEPRAZOLE SODIUM [Concomitant]
     Active Substance: RABEPRAZOLE SODIUM
  22. DAYVIGO [Concomitant]
     Active Substance: LEMBOREXANT
  23. NOREPINEPHRINE [Concomitant]
     Active Substance: NOREPINEPHRINE
  24. CEFMETAZOLE SODIUM [Concomitant]
     Active Substance: CEFMETAZOLE SODIUM
  25. METRONIDAZOLE [Concomitant]
     Active Substance: METRONIDAZOLE
  26. CEFEPIME HYDROCHLORIDE [Concomitant]
     Active Substance: CEFEPIME HYDROCHLORIDE
  27. VENOGLOBULIN [Concomitant]
     Active Substance: HUMAN IMMUNOGLOBULIN G
  28. TEICOPLANIN [Concomitant]
     Active Substance: TEICOPLANIN
  29. FESIN [Concomitant]
  30. MIYA-BM [Concomitant]
     Active Substance: CLOSTRIDIUM BUTYRICUM SPORES STRAIN M-55
  31. LEVOFLOXACIN HEMIHYDRATE [Concomitant]
     Active Substance: LEVOFLOXACIN

REACTIONS (3)
  - Dialysis related complication [Fatal]
  - Pseudomonal sepsis [Recovering/Resolving]
  - Transplant rejection [Not Recovered/Not Resolved]

NARRATIVE: CASE EVENT DATE: 20241102
